FAERS Safety Report 19205243 (Version 1)
Quarter: 2021Q2

REPORT INFORMATION
  Report Type: Spontaneous
  Country: US (occurrence: US)
  Receive Date: 20210503
  Receipt Date: 20210503
  Transmission Date: 20210717
  Serious: No
  Sender: FDA-Public Use
  Company Number: US-TAKEDA-2021TUS027812

PATIENT
  Age: 34 Year
  Sex: Male

DRUGS (2)
  1. CEPROTIN [Suspect]
     Active Substance: PROTEIN C
     Indication: PURPURA FULMINANS
     Dosage: UNK
     Route: 042
  2. CEPROTIN [Suspect]
     Active Substance: PROTEIN C
     Indication: INFECTION

REACTIONS (2)
  - Off label use [Unknown]
  - No adverse event [Unknown]
